FAERS Safety Report 6729958-2 (Version None)
Quarter: 2010Q2

REPORT INFORMATION
  Report Type: 
  Country: None (occurrence: None)
  Receive Date: 20100513
  Receipt Date: 20100428
  Transmission Date: 20101027
  Serious: Yes (Other)
  Sender: FDA-Public Use
  Company Number: 2009003741

PATIENT
  Age: 80 Year
  Sex: Female
  Weight: 48.8 kg

DRUGS (7)
  1. ERLOTINIB (ERLOTINIB) (TABLET) (ERLOTINIIB) [Suspect]
     Indication: LUNG ADENOCARCINOMA
     Dosage: (150 MG,QD) ,ORAL
     Route: 048
     Dates: start: 20090126, end: 20090202
  2. FAMOTIFINE (FAMOTIDINE) [Concomitant]
  3. AMLODIPINE BESYLATE [Concomitant]
  4. DASEN (SERRAPEPTASE) [Concomitant]
  5. SPIRONOLACTONE [Concomitant]
  6. BIOFERMIN (BIOFERMIN) [Concomitant]
  7. GLYCEROL 2.6% [Concomitant]

REACTIONS (3)
  - HISTIOCYTOSIS HAEMATOPHAGIC [None]
  - LUNG ADENOCARCINOMA [None]
  - MALIGNANT NEOPLASM PROGRESSION [None]
